FAERS Safety Report 10172702 (Version 3)
Quarter: 2014Q4

REPORT INFORMATION
  Report Type: Spontaneous
  Country: JP (occurrence: JP)
  Receive Date: 20140515
  Receipt Date: 20141010
  Transmission Date: 20150528
  Serious: Yes (Other)
  Sender: FDA-Public Use
  Company Number: JP-AMGEN-JPNSP2014035373

PATIENT
  Age: 47 Year
  Sex: Female
  Weight: 62 kg

DRUGS (18)
  1. TRAVELMIN                          /00517301/ [Concomitant]
     Indication: NAUSEA
     Dosage: 1 DF, TID
     Route: 048
     Dates: start: 201207
  2. FLUOROURACIL. [Concomitant]
     Active Substance: FLUOROURACIL
     Indication: BREAST CANCER
     Dosage: 840 MG, UNK
     Route: 041
     Dates: start: 20121115, end: 20130701
  3. CYCLOPHOSPHAMIDE. [Concomitant]
     Active Substance: CYCLOPHOSPHAMIDE
     Indication: BREAST CANCER
     Dosage: 840 MG, UNK
     Route: 041
     Dates: start: 20121115, end: 20130701
  4. ZOLADEX                            /00732102/ [Concomitant]
     Indication: BREAST CANCER
     Dosage: 3.6 MG, QD
     Route: 058
     Dates: start: 20120717
  5. DENOTAS [Concomitant]
     Active Substance: CALCIUM CARBONATE\CHOLECALCIFEROL\MAGNESIUM CARBONATE
     Indication: METASTASES TO BONE
     Dosage: 2 DF, QD
     Route: 048
     Dates: start: 20130806
  6. HALAVEN [Concomitant]
     Active Substance: ERIBULIN MESYLATE
     Indication: BREAST CANCER
     Dosage: 2.3 MG, UNK
     Route: 041
     Dates: start: 20130716, end: 20131007
  7. ARIMIDEX [Concomitant]
     Active Substance: ANASTROZOLE
     Indication: BREAST CANCER
     Dosage: 1 MG, QD
     Route: 048
     Dates: start: 20131015
  8. MAGMITT [Concomitant]
     Active Substance: MAGNESIUM OXIDE
     Indication: CONSTIPATION
     Dosage: 330 MG, TID
     Route: 048
     Dates: start: 201207
  9. ABRAXANE [Concomitant]
     Active Substance: PACLITAXEL
     Indication: BREAST CANCER
     Dosage: 440 MG, UNK
     Route: 041
     Dates: start: 20120810, end: 20121107
  10. GASTER [Concomitant]
     Active Substance: FAMOTIDINE
     Indication: GASTRITIS
     Dosage: 20 MG, BID
     Route: 048
     Dates: start: 201207
  11. EPIRUBICIN HYDROCHLORIDE. [Concomitant]
     Active Substance: EPIRUBICIN HYDROCHLORIDE
     Indication: BREAST CANCER
     Dosage: 165 MG, UNK
     Route: 041
     Dates: start: 20121115, end: 20130701
  12. AVASTIN [Concomitant]
     Active Substance: BEVACIZUMAB
     Indication: BREAST CANCER
     Dosage: 620 MG, UNK
     Route: 041
     Dates: start: 20130716, end: 20140926
  13. AVASTIN [Concomitant]
     Active Substance: BEVACIZUMAB
     Dosage: 620 MG, 27 TIMES
     Route: 041
     Dates: start: 20130716, end: 20140926
  14. RANMARK [Suspect]
     Active Substance: DENOSUMAB
     Indication: METASTASES TO BONE
     Dosage: 120 MG, UNK
     Route: 058
     Dates: start: 20120626, end: 20140408
  15. LYRICA [Concomitant]
     Active Substance: PREGABALIN
     Indication: NEURALGIA
     Dosage: 75 MG, BID
     Route: 048
     Dates: start: 20131219
  16. FERRUM                             /00023502/ [Concomitant]
     Indication: IRON DEFICIENCY ANAEMIA
     Dosage: 100 MG, QD
     Route: 048
     Dates: start: 201207
  17. PACLITAXEL. [Concomitant]
     Active Substance: PACLITAXEL
     Indication: BREAST CANCER
     Dosage: 140 MG, UNK
     Route: 041
     Dates: start: 20130716, end: 20140926
  18. TRAMCET [Concomitant]
     Active Substance: ACETAMINOPHEN\TRAMADOL
     Indication: CANCER PAIN
     Dosage: 1 DF, QID
     Route: 048
     Dates: start: 201207

REACTIONS (1)
  - Osteonecrosis of jaw [Not Recovered/Not Resolved]

NARRATIVE: CASE EVENT DATE: 20140422
